FAERS Safety Report 17957808 (Version 1)
Quarter: 2020Q2

REPORT INFORMATION
  Report Type: Spontaneous
  Country: US (occurrence: US)
  Receive Date: 20200629
  Receipt Date: 20200629
  Transmission Date: 20200714
  Serious: Yes (Hospitalization)
  Sender: FDA-Public Use
  Company Number: US-MYLANLABS-2020M1059201

PATIENT
  Age: 45 Year
  Sex: Female

DRUGS (10)
  1. MAGNESIUM SULFATE. [Suspect]
     Active Substance: MAGNESIUM SULFATE
     Indication: SEIZURE PROPHYLAXIS
     Route: 065
     Dates: start: 202003, end: 20200326
  2. FUROSEMIDE. [Suspect]
     Active Substance: FUROSEMIDE
     Indication: CARDIOMYOPATHY
     Route: 042
     Dates: start: 20200326
  3. HYDROXYCHLOROQUINE [Suspect]
     Active Substance: HYDROXYCHLOROQUINE
     Indication: COVID-19
     Dosage: 400 MILLIGRAM, 12 HOURS
     Route: 048
     Dates: start: 20200330, end: 20200331
  4. METHYLPREDNISOLONE. [Suspect]
     Active Substance: METHYLPREDNISOLONE
     Indication: COVID-19
     Dosage: 60 MILLIGRAM, Q3H
     Route: 042
     Dates: start: 20200330, end: 20200330
  5. NOREPINEPHRINE. [Concomitant]
     Active Substance: NOREPINEPHRINE
     Indication: CARDIOMYOPATHY
     Dosage: 8 MICROGRAM, QMINUTE, TITRATED UP TO A MAXIMUM OF 20 MICROG/MIN
     Route: 041
     Dates: start: 20200331
  6. METHYLPREDNISOLONE. [Suspect]
     Active Substance: METHYLPREDNISOLONE
     Dosage: 100 MILLIGRAM, QD, AFTER INITIAL DOSES
     Route: 042
     Dates: start: 20200330
  7. NOREPINEPHRINE. [Concomitant]
     Active Substance: NOREPINEPHRINE
     Dosage: 20 MICROGRAM, QMINUTE
     Route: 041
     Dates: start: 20200331
  8. FUROSEMIDE. [Suspect]
     Active Substance: FUROSEMIDE
     Indication: CARDIAC FAILURE ACUTE
  9. HYDROXYCHLOROQUINE [Suspect]
     Active Substance: HYDROXYCHLOROQUINE
     Dosage: 400 MILLIGRAM, QD
     Route: 048
     Dates: start: 20200331
  10. TOCILIZUMAB. [Suspect]
     Active Substance: TOCILIZUMAB
     Indication: COVID-19
     Dosage: 800 MILLIGRAM, 1 DOSE
     Route: 042
     Dates: start: 20200331, end: 20200331

REACTIONS (3)
  - Maternal exposure during pregnancy [Recovered/Resolved]
  - Off label use [Unknown]
  - Drug ineffective [Unknown]

NARRATIVE: CASE EVENT DATE: 2020
